FAERS Safety Report 24982727 (Version 2)
Quarter: 2025Q2

REPORT INFORMATION
  Report Type: Report from Study
  Country: PH (occurrence: PH)
  Receive Date: 20250218
  Receipt Date: 20250428
  Transmission Date: 20250717
  Serious: Yes (Death)
  Sender: OTSUKA
  Company Number: PH-MMM-Otsuka-I7K089JW

PATIENT
  Sex: Male

DRUGS (1)
  1. TOLVAPTAN [Suspect]
     Active Substance: TOLVAPTAN
     Indication: Product used for unknown indication
     Dosage: 1 DF, QD (15 MG ONE TABLET ONCE A DAY)
     Route: 048

REACTIONS (1)
  - Death [Fatal]
